FAERS Safety Report 5071465-X (Version None)
Quarter: 2006Q3

REPORT INFORMATION
  Report Type: 
  Country: None (occurrence: None)
  Receive Date: 20060804
  Receipt Date: 20060509
  Transmission Date: 20061208
  Serious: Yes (Other)
  Sender: FDA-Public Use
  Company Number: GB-GLAXOSMITHKLINE-B0423087A

PATIENT
  Age: 72 Year
  Sex: Female

DRUGS (2)
  1. AVANDIA [Suspect]
     Indication: DIABETES MELLITUS NON-INSULIN-DEPENDENT
     Dosage: 4MG PER DAY
     Route: 048
     Dates: start: 20051216, end: 20060417
  2. FLUCLOXACILLIN [Concomitant]

REACTIONS (3)
  - ABDOMINAL PAIN UPPER [None]
  - JAUNDICE [None]
  - NAUSEA [None]
